FAERS Safety Report 10572873 (Version 1)
Quarter: 2014Q4

REPORT INFORMATION
  Report Type: Spontaneous
  Country: CA (occurrence: None)
  Receive Date: 20141106
  Receipt Date: 20141106
  Transmission Date: 20150529
  Serious: Yes (Hospitalization)
  Sender: FDA-Public Use
  Company Number: COL_18406_2014

PATIENT
  Sex: Male

DRUGS (1)
  1. COLGATE SENSITIVE PRO-RELIEF PROARGIN ENAMEL REPAIR TOOTHPASTE [Suspect]
     Active Substance: ARGININE\CALCIUM CARBONATE\SODIUM MONOFLUOROPHOSPHATE
     Indication: PRODUCT USED FOR UNKNOWN INDICATION
     Dosage: A PEA SIZE ENAMEL REPAIR TOOTHPASTE
     Route: 048
     Dates: start: 201410, end: 20141024

REACTIONS (2)
  - Hypersensitivity [None]
  - Glossitis [None]

NARRATIVE: CASE EVENT DATE: 20141024
